FAERS Safety Report 4434558-3 (Version None)
Quarter: 2004Q3

REPORT INFORMATION
  Report Type: 
  Country: None (occurrence: None)
  Receive Date: 20040721
  Receipt Date: 20031117
  Transmission Date: 20050211
  Serious: Yes (Life-Threatening, Hospitalization, Disabling, Other)
  Sender: FDA-Public Use
  Company Number: WAES 0311USA02016

PATIENT
  Age: 88 Year
  Sex: Female
  Weight: 48.9885 kg

DRUGS (9)
  1. VIOXX [Suspect]
     Indication: SPINAL OSTEOARTHRITIS
     Dosage: 25MG/DAILY/PO
     Route: 048
     Dates: start: 20020601, end: 20031001
  2. FOSAMAX [Concomitant]
  3. HYDRODIURIL [Concomitant]
  4. LIPITOR [Concomitant]
  5. NEURONTIN [Concomitant]
  6. PROTONIX [Concomitant]
  7. SYNTHROID [Concomitant]
  8. TYLENOL [Concomitant]
  9. ASPIRIN [Concomitant]

REACTIONS (1)
  - DUODENAL ULCER HAEMORRHAGE [None]
